FAERS Safety Report 10080419 (Version 2)
Quarter: 2014Q2

REPORT INFORMATION
  Report Type: Spontaneous
  Country: DE (occurrence: DE)
  Receive Date: 20140416
  Receipt Date: 20140521
  Transmission Date: 20141212
  Serious: Yes (Disabling)
  Sender: FDA-Public Use
  Company Number: DE-ROCHE-1381822

PATIENT
  Sex: Female
  Weight: 58 kg

DRUGS (7)
  1. ROACTEMRA [Suspect]
     Indication: RHEUMATOID ARTHRITIS
     Route: 042
     Dates: start: 20110929, end: 20140219
  2. HUMIRA [Suspect]
     Indication: RHEUMATOID ARTHRITIS
     Route: 058
     Dates: start: 20101002, end: 20110527
  3. ENBREL [Suspect]
     Indication: RHEUMATOID ARTHRITIS
     Route: 058
     Dates: start: 20110624, end: 20110916
  4. METHOTREXATE [Concomitant]
     Indication: RHEUMATOID ARTHRITIS
     Dosage: DOSAGE WAS INCREASED FROM 15 MG TO 20 MG
     Route: 048
     Dates: start: 20070428, end: 201003
  5. METHOTREXATE [Concomitant]
     Dosage: DOSAGE DECREASED FROM 20 TO 10 MG
     Route: 048
     Dates: start: 201008, end: 201403
  6. PREDNISOLON [Concomitant]
     Indication: RHEUMATOID ARTHRITIS
     Route: 048
     Dates: start: 20070404
  7. CANDESARTAN [Concomitant]
     Indication: HYPERTENSION
     Route: 048

REACTIONS (2)
  - White matter lesion [Not Recovered/Not Resolved]
  - Paraesthesia [Not Recovered/Not Resolved]
